FAERS Safety Report 22359552 (Version 1)
Quarter: 2023Q2

REPORT INFORMATION
  Report Type: Spontaneous
  Country: US (occurrence: None)
  Receive Date: 20230523
  Receipt Date: 20230523
  Transmission Date: 20230721
  Serious: Yes (Hospitalization)
  Sender: FDA-Public Use
  Company Number: None

PATIENT
  Sex: Female

DRUGS (14)
  1. AMBRISENTAN [Suspect]
     Active Substance: AMBRISENTAN
     Indication: Pulmonary hypertension
     Dosage: FREQUENCY : DAILY;?
     Route: 048
     Dates: start: 20230216
  2. AMBRISENTAN [Suspect]
     Active Substance: AMBRISENTAN
     Dosage: FREQUENCY : DAILY;?
     Route: 048
  3. ADVAIR DISKU AER [Concomitant]
  4. ALBUTEROL AER HFA [Concomitant]
  5. AMLODIPINE [Concomitant]
  6. BUSPIRONE [Concomitant]
  7. CALCIUM 600 +D [Concomitant]
  8. DICYCLOMINE [Concomitant]
     Active Substance: DICYCLOMINE HYDROCHLORIDE
  9. FUROSEMIDE [Concomitant]
     Active Substance: FUROSEMIDE
  10. HYZAAR [Concomitant]
     Active Substance: HYDROCHLOROTHIAZIDE\LOSARTAN POTASSIUM
  11. POT CL MICRO [Concomitant]
  12. SPIRONOLACTONE [Concomitant]
     Active Substance: SPIRONOLACTONE
  13. TADALAFIL [Concomitant]
     Active Substance: TADALAFIL
  14. VITAMIN D3 [Concomitant]
     Active Substance: CHOLECALCIFEROL

REACTIONS (6)
  - Oesophageal operation [None]
  - Intentional dose omission [None]
  - Dyspnoea [None]
  - Epistaxis [None]
  - Ocular hyperaemia [None]
  - Malaise [None]
